FAERS Safety Report 9619925 (Version 3)
Quarter: 2013Q4

REPORT INFORMATION
  Report Type: Spontaneous
  Country: DE (occurrence: DE)
  Receive Date: 20131014
  Receipt Date: 20131017
  Transmission Date: 20140711
  Serious: Yes (Hospitalization)
  Sender: FDA-Public Use
  Company Number: DE-ABBVIE-13P-062-1133806-00

PATIENT
  Age: 18 Year
  Sex: Female
  Weight: 71 kg

DRUGS (1)
  1. ENANTONE [Suspect]
     Indication: PRECOCIOUS PUBERTY
     Route: 058
     Dates: start: 2002, end: 2005

REACTIONS (2)
  - Bipolar disorder [Recovered/Resolved]
  - Depression [Recovered/Resolved]
